FAERS Safety Report 5994715-1 (Version None)
Quarter: 2008Q4

REPORT INFORMATION
  Report Type: 
  Country: None (occurrence: None)
  Receive Date: 20081212
  Receipt Date: 20080608
  Transmission Date: 20090506
  Serious: No
  Sender: FDA-Public Use
  Company Number: US-AMGEN-KDL285626

PATIENT
  Sex: Female

DRUGS (3)
  1. ENBREL [Suspect]
     Indication: RHEUMATOID ARTHRITIS
     Route: 058
     Dates: start: 20080315
  2. METHOTREXATE [Concomitant]
     Route: 048
     Dates: start: 20070601
  3. PLAQUENIL [Concomitant]
     Dates: start: 20070101

REACTIONS (1)
  - PAIN IN EXTREMITY [None]
